FAERS Safety Report 16311291 (Version 1)
Quarter: 2019Q2

REPORT INFORMATION
  Report Type: Spontaneous
  Country: US (occurrence: US)
  Receive Date: 20190514
  Receipt Date: 20190514
  Transmission Date: 20190711
  Serious: Yes (Hospitalization)
  Sender: FDA-Public Use
  Company Number: US-FRESENIUS MEDICAL CARE RENAL THERAPIES GROUP-FMC-1905-000524

PATIENT
  Age: 81 Year
  Sex: Female
  Weight: 54.48 kg

DRUGS (16)
  1. LATANOPROST. [Concomitant]
     Active Substance: LATANOPROST
  2. LEVEMIR [Concomitant]
     Active Substance: INSULIN DETEMIR
  3. METOPROLOL. [Concomitant]
     Active Substance: METOPROLOL
  4. NITROSTAT [Concomitant]
     Active Substance: NITROGLYCERIN
  5. POTASSIUM CHLORIDE. [Concomitant]
     Active Substance: POTASSIUM CHLORIDE
  6. ASPIRIN. [Concomitant]
     Active Substance: ASPIRIN
  7. CRESTOR [Concomitant]
     Active Substance: ROSUVASTATIN CALCIUM
  8. LASIX [Concomitant]
     Active Substance: FUROSEMIDE
  9. GABAPENTIN. [Concomitant]
     Active Substance: GABAPENTIN
  10. NOVOLOG [Concomitant]
     Active Substance: INSULIN ASPART
  11. DELFLEX [Suspect]
     Active Substance: CALCIUM CHLORIDE\DEXTROSE\MAGNESIUM CHLORIDE\SODIUM CHLORIDE\SODIUM LACTATE
     Indication: END STAGE RENAL DISEASE
     Route: 033
     Dates: start: 20160419
  12. LIPITOR [Concomitant]
     Active Substance: ATORVASTATIN CALCIUM
  13. OMEPRAZOLE. [Concomitant]
     Active Substance: OMEPRAZOLE
  14. CALCITRIOL. [Concomitant]
     Active Substance: CALCITRIOL
  15. EPOGEN [Concomitant]
     Active Substance: ERYTHROPOIETIN
  16. SENSIPAR [Concomitant]
     Active Substance: CINACALCET HYDROCHLORIDE

REACTIONS (2)
  - Fluid overload [Recovered/Resolved]
  - Peritoneal disorder [Unknown]

NARRATIVE: CASE EVENT DATE: 20190415
